FAERS Safety Report 7814953-2 (Version None)
Quarter: 2011Q4

REPORT INFORMATION
  Report Type: 
  Country: None (occurrence: None)
  Receive Date: 20111014
  Receipt Date: 20111013
  Transmission Date: 20120403
  Serious: Yes (Life-Threatening, Hospitalization, Other)
  Sender: FDA-Public Use
  Company Number: DK-ABBOTT-11P-044-0714540-00

PATIENT
  Sex: Male
  Weight: 80 kg

DRUGS (8)
  1. REMICADE [Suspect]
     Indication: ANKYLOSING SPONDYLITIS
     Dates: start: 20051125, end: 20100311
  2. PROPAL [Concomitant]
     Indication: VARICES OESOPHAGEAL
     Dates: start: 20110726
  3. HUMIRA [Suspect]
     Indication: ANKYLOSING SPONDYLITIS
     Dates: start: 20100909, end: 20110519
  4. METHOTREXATE [Concomitant]
     Dosage: 7.5 MG DAILY
  5. PREDNISOLONE [Concomitant]
     Indication: PRODUCT USED FOR UNKNOWN INDICATION
  6. BUDENOFALK [Concomitant]
     Indication: AUTOIMMUNE HEPATITIS
     Dates: start: 20110515
  7. HUMIRA [Suspect]
  8. METHOTREXATE [Concomitant]
     Indication: URTICARIA
     Dosage: 25 MG DAILY
     Dates: start: 20060101

REACTIONS (12)
  - HEPATIC CIRRHOSIS [None]
  - ARTHROPATHY [None]
  - THROMBOCYTOPENIA [None]
  - SARCOIDOSIS [None]
  - COUGH [None]
  - LEUKOPENIA [None]
  - PNEUMONIA [None]
  - BONE MARROW FAILURE [None]
  - ILL-DEFINED DISORDER [None]
  - INFECTION [None]
  - BONE MARROW GRANULOMA [None]
  - NEUTROPENIA [None]
